FAERS Safety Report 15859970 (Version 1)
Quarter: 2019Q1

REPORT INFORMATION
  Report Type: Spontaneous
  Country: DE (occurrence: DE)
  Receive Date: 20190123
  Receipt Date: 20190123
  Transmission Date: 20190417
  Serious: Yes (Other)
  Sender: FDA-Public Use
  Company Number: DE-MYLANLABS-2019M1005546

PATIENT
  Age: 82 Year
  Sex: Female

DRUGS (2)
  1. AZATHIOPRINE. [Suspect]
     Active Substance: AZATHIOPRINE
     Indication: PRODUCT USED FOR UNKNOWN INDICATION
     Dosage: 50 MILLIGRAM (SINCE 1992, 2 X 50 MG)
     Dates: start: 1992
  2. PANTOPRAZOLE [Concomitant]
     Active Substance: PANTOPRAZOLE
     Indication: PRODUCT USED FOR UNKNOWN INDICATION
     Dosage: UNKNOWN

REACTIONS (5)
  - Gastrointestinal carcinoma [Not Recovered/Not Resolved]
  - Eye irritation [Not Recovered/Not Resolved]
  - Skin cancer [Not Recovered/Not Resolved]
  - Osteoporosis [Not Recovered/Not Resolved]
  - Alopecia [Not Recovered/Not Resolved]
